FAERS Safety Report 16120973 (Version 1)
Quarter: 2019Q1

REPORT INFORMATION
  Report Type: Spontaneous
  Country: US (occurrence: US)
  Receive Date: 20190327
  Receipt Date: 20190327
  Transmission Date: 20190418
  Serious: Yes (Other)
  Sender: FDA-Public Use
  Company Number: US-CIPLA LTD.-2019US01543

PATIENT

DRUGS (4)
  1. AMLODIPINE [Suspect]
     Active Substance: AMLODIPINE BESYLATE
     Indication: PRODUCT USED FOR UNKNOWN INDICATION
     Dosage: UNK (UNKNOWN MANUFACTURER)
     Route: 065
  2. AMLODIPINE [Suspect]
     Active Substance: AMLODIPINE BESYLATE
     Dosage: UNK, CIPLA MANUFACTURED
     Route: 065
     Dates: start: 20190117
  3. NORVASC [Suspect]
     Active Substance: AMLODIPINE BESYLATE
     Indication: LABILE BLOOD PRESSURE
     Dosage: 2.5 MILLIGRAM TABLET DAILY
     Route: 048
     Dates: start: 20190118, end: 20190118
  4. AMLODIPINE [Suspect]
     Active Substance: AMLODIPINE BESYLATE
     Dosage: UNK, FOR 6 WEEKS (STRENGTH: 2.5 MG)
     Route: 065
     Dates: start: 20181203

REACTIONS (2)
  - Ocular discomfort [Recovered/Resolved]
  - Headache [Unknown]

NARRATIVE: CASE EVENT DATE: 20190118
